FAERS Safety Report 18144272 (Version 2)
Quarter: 2020Q3

REPORT INFORMATION
  Report Type: Report from Study
  Country: AU (occurrence: AU)
  Receive Date: 20200813
  Receipt Date: 20200821
  Transmission Date: 20201104
  Serious: Yes (Hospitalization)
  Sender: FDA-Public Use
  Company Number: AU-GLAXOSMITHKLINE-AU2020GSK152850

PATIENT
  Age: 72 Year
  Sex: Male

DRUGS (10)
  1. COVERSYL [Concomitant]
     Active Substance: PERINDOPRIL
     Indication: BLOOD PRESSURE MEASUREMENT
     Dosage: 2.5 MG, QD
     Route: 048
     Dates: start: 202001
  2. SPAN?K [Concomitant]
     Active Substance: POTASSIUM CHLORIDE
     Indication: MINERAL SUPPLEMENTATION
     Dosage: 600 MG, BID
     Route: 048
     Dates: start: 202001
  3. BISOPROLOL [Concomitant]
     Active Substance: BISOPROLOL
     Indication: CARDIOVASCULAR DISORDER
     Dosage: 5 MG, QD
     Route: 048
     Dates: start: 202001
  4. NORSPAN [Concomitant]
     Active Substance: BUPRENORPHINE
     Indication: PAIN
     Dosage: 10 MG, WE
     Route: 062
     Dates: start: 2013
  5. FRUSEMIDE [Concomitant]
     Active Substance: FUROSEMIDE
     Indication: CARDIOVASCULAR DISORDER
     Dosage: 20 MG, QD
     Route: 048
     Dates: start: 202001
  6. CRESTOR [Concomitant]
     Active Substance: ROSUVASTATIN CALCIUM
     Dosage: 5 MG, QD
     Route: 048
     Dates: start: 202001
  7. BELANTAMAB MAFODOTIN. [Suspect]
     Active Substance: BELANTAMAB MAFODOTIN
     Indication: PLASMA CELL MYELOMA
     Dosage: UNK
     Dates: start: 20200805
  8. BACTRIM [Concomitant]
     Active Substance: SULFAMETHOXAZOLE\TRIMETHOPRIM
     Indication: PNEUMOCYSTIS JIROVECII INFECTION
     Dosage: 800/160 MG QD
     Route: 048
     Dates: start: 2013
  9. ELIQUIS [Concomitant]
     Active Substance: APIXABAN
     Indication: THROMBOSIS PROPHYLAXIS
     Dosage: 5 MG, BID
     Route: 048
     Dates: start: 202004
  10. ZOMETA [Concomitant]
     Active Substance: ZOLEDRONIC ACID
     Dosage: 4 MG QM
     Route: 042
     Dates: start: 2013

REACTIONS (1)
  - Infusion related reaction [Recovered/Resolved]

NARRATIVE: CASE EVENT DATE: 20200805
